FAERS Safety Report 5318319-9 (Version None)
Quarter: 2007Q2

REPORT INFORMATION
  Report Type: 
  Country: None (occurrence: None)
  Receive Date: 20070507
  Receipt Date: 20070426
  Transmission Date: 20071010
  Serious: Yes (Hospitalization)
  Sender: FDA-Public Use
  Company Number: FR-BAXTER-2007BH003969

PATIENT
  Age: 4 Year
  Sex: Female
  Weight: 16 kg

DRUGS (1)
  1. GAMMAGARD S/D [Suspect]
     Indication: ACUTE LEUKAEMIA
     Route: 042
     Dates: start: 20070412

REACTIONS (5)
  - BLOOD PRESSURE INCREASED [None]
  - CHEST PAIN [None]
  - CYANOSIS [None]
  - FEELING COLD [None]
  - TACHYCARDIA [None]
